FAERS Safety Report 11699246 (Version 1)
Quarter: 2015Q4

REPORT INFORMATION
  Report Type: Spontaneous
  Country: US (occurrence: US)
  Receive Date: 20151104
  Receipt Date: 20151104
  Transmission Date: 20160304
  Serious: No
  Sender: FDA-Public Use
  Company Number: US-ANTARES PHARMA, INC.-2015-SPO-MX-0063

PATIENT
  Age: 49 Year
  Sex: Female

DRUGS (29)
  1. FOLIC ACID. [Concomitant]
     Active Substance: FOLIC ACID
  2. ADDERALL [Concomitant]
     Active Substance: AMPHETAMINE ASPARTATE\AMPHETAMINE SULFATE\DEXTROAMPHETAMINE SACCHARATE\DEXTROAMPHETAMINE SULFATE
  3. OTREXUP [Suspect]
     Active Substance: METHOTREXATE
     Indication: PSORIATIC ARTHROPATHY
     Dosage: 15 MG/0.4ML, QWK
     Route: 058
     Dates: start: 201505, end: 20150727
  4. OTREXUP [Suspect]
     Active Substance: METHOTREXATE
     Dosage: 20 MG/0.4ML, QWK
     Route: 058
     Dates: start: 20150803
  5. PERCOCET                           /00446701/ [Concomitant]
     Active Substance: ACETAMINOPHEN\OXYCODONE HYDROCHLORIDE\OXYCODONE TEREPHTHALATE
  6. VITAMIN B12                        /07503801/ [Concomitant]
  7. MOBIC [Concomitant]
     Active Substance: MELOXICAM
  8. LEVAQUIN [Concomitant]
     Active Substance: LEVOFLOXACIN
     Indication: SINUSITIS
  9. MS CONTIN [Concomitant]
     Active Substance: MORPHINE SULFATE
  10. PROPRANOLOL [Concomitant]
     Active Substance: PROPRANOLOL\PROPRANOLOL HYDROCHLORIDE
  11. BUSPAR [Concomitant]
     Active Substance: BUSPIRONE HYDROCHLORIDE
  12. HALOBETASOL [Concomitant]
     Active Substance: HALOBETASOL PROPIONATE
  13. ZOFRAN [Concomitant]
     Active Substance: ONDANSETRON HYDROCHLORIDE
  14. BENADRYL [Concomitant]
     Active Substance: DIPHENHYDRAMINE HYDROCHLORIDE
  15. FIORICET [Concomitant]
     Active Substance: ACETAMINOPHEN\BUTALBITAL\CAFFEINE
  16. LOTRISONE [Concomitant]
     Active Substance: BETAMETHASONE DIPROPIONATE\CLOTRIMAZOLE
  17. CEFTIN [Concomitant]
     Active Substance: CEFUROXIME AXETIL
     Indication: SINUSITIS
  18. ALLEGRA [Concomitant]
     Active Substance: FEXOFENADINE HYDROCHLORIDE
  19. FETZIMA [Concomitant]
     Active Substance: LEVOMILNACIPRAN HYDROCHLORIDE
  20. WELLBUTRIN [Concomitant]
     Active Substance: BUPROPION HYDROCHLORIDE
  21. AMITRIPTYLENE [Concomitant]
     Active Substance: AMITRIPTYLINE
  22. ESTRADIOL. [Concomitant]
     Active Substance: ESTRADIOL
  23. LEXAPRO [Concomitant]
     Active Substance: ESCITALOPRAM OXALATE
  24. LOVENOX [Concomitant]
     Active Substance: ENOXAPARIN SODIUM
  25. LYRICA [Concomitant]
     Active Substance: PREGABALIN
  26. SINGULAIR [Concomitant]
     Active Substance: MONTELUKAST SODIUM
  27. MAXALT [Concomitant]
     Active Substance: RIZATRIPTAN BENZOATE
  28. SKELAXIN [Concomitant]
     Active Substance: METAXALONE
  29. VOLTAREN [Concomitant]
     Active Substance: DICLOFENAC SODIUM

REACTIONS (6)
  - Dry mouth [None]
  - Neuralgia [None]
  - Swollen tongue [None]
  - Aphthous ulcer [None]
  - Lip ulceration [None]
  - Stomatitis [Not Recovered/Not Resolved]

NARRATIVE: CASE EVENT DATE: 20150817
